FAERS Safety Report 5723864-8 (Version None)
Quarter: 2008Q2

REPORT INFORMATION
  Report Type: 
  Country: None (occurrence: None)
  Receive Date: 20080429
  Receipt Date: 20080429
  Transmission Date: 20081010
  Serious: No
  Sender: FDA-Public Use
  Company Number: None

PATIENT
  Age: 48 Year
  Sex: Male
  Weight: 95.2554 kg

DRUGS (2)
  1. NASONEX [Suspect]
     Indication: NASAL CONGESTION
     Dosage: 1 SPRAY TWICE DAILY NASAL
     Route: 045
     Dates: start: 20080412, end: 20080415
  2. NASONEX [Suspect]
     Indication: NASAL DRYNESS
     Dosage: 1 SPRAY TWICE DAILY NASAL
     Route: 045
     Dates: start: 20080412, end: 20080415

REACTIONS (5)
  - EPISTAXIS [None]
  - NASAL CONGESTION [None]
  - NASAL DISCOMFORT [None]
  - RHINALGIA [None]
  - SCAR [None]
